FAERS Safety Report 6209593-5 (Version None)
Quarter: 2009Q2

REPORT INFORMATION
  Report Type: 
  Country: None (occurrence: None)
  Receive Date: 20090601
  Receipt Date: 20090527
  Transmission Date: 20091009
  Serious: Yes (Hospitalization)
  Sender: FDA-Public Use
  Company Number: FR-BRISTOL-MYERS SQUIBB COMPANY-14639652

PATIENT
  Age: 100 Year
  Sex: Female

DRUGS (3)
  1. HYDREA [Suspect]
     Indication: ESSENTIAL THROMBOCYTHAEMIA
     Dates: start: 20020101, end: 20090421
  2. PURINETHOL [Suspect]
     Indication: ESSENTIAL THROMBOCYTHAEMIA
     Dates: start: 20020101, end: 20090421
  3. BUFLOMEDIL [Suspect]
     Dates: end: 20090423

REACTIONS (3)
  - FALL [None]
  - MALAISE [None]
  - VERTIGO [None]
